FAERS Safety Report 12663754 (Version 2)
Quarter: 2016Q3

REPORT INFORMATION
  Report Type: Spontaneous
  Country: US (occurrence: US)
  Receive Date: 20160818
  Receipt Date: 20160819
  Transmission Date: 20161109
  Serious: Yes (Hospitalization)
  Sender: FDA-Public Use
  Company Number: US-ACADIA PHARMACEUTICALS INC.-ACA-2016-000061

PATIENT
  Age: 85 Year
  Sex: Female
  Weight: 88.44 kg

DRUGS (5)
  1. NUPLAZID [Suspect]
     Active Substance: PIMAVANSERIN TARTRATE
     Indication: DELUSION
  2. CLONAZEPAM. [Concomitant]
     Active Substance: CLONAZEPAM
     Indication: PRODUCT USED FOR UNKNOWN INDICATION
     Dosage: UNK
  3. SEROQUEL [Suspect]
     Active Substance: QUETIAPINE FUMARATE
     Indication: PSYCHOTIC DISORDER
     Dosage: UNK
  4. NUPLAZID [Suspect]
     Active Substance: PIMAVANSERIN TARTRATE
     Indication: PARKINSON^S DISEASE PSYCHOSIS
     Dosage: 34 MG, QD
     Route: 048
     Dates: start: 20160620, end: 201606
  5. NUPLAZID [Suspect]
     Active Substance: PIMAVANSERIN TARTRATE
     Indication: HALLUCINATION
     Dosage: 34 MG, QD
     Route: 048
     Dates: start: 201606

REACTIONS (6)
  - Somnolence [Unknown]
  - Hospitalisation [Not Recovered/Not Resolved]
  - Dysphagia [Recovering/Resolving]
  - Fatigue [Unknown]
  - Decreased appetite [Recovering/Resolving]
  - Depression [Unknown]

NARRATIVE: CASE EVENT DATE: 201606
